FAERS Safety Report 8799369 (Version 1)
Quarter: 2012Q4

REPORT INFORMATION
  Report Type: Spontaneous
  Country: US (occurrence: None)
  Receive Date: 20120918
  Receipt Date: 20120918
  Transmission Date: 20130627
  Serious: Yes (Other)
  Sender: FDA-Public Use
  Company Number: None

PATIENT
  Age: 35 Year
  Sex: Female
  Weight: 81.65 kg

DRUGS (6)
  1. CYMBALTA [Suspect]
     Indication: ANXIETY
     Dosage: 1 capsule once daily po
     Route: 048
     Dates: start: 201106, end: 201112
  2. CYMBALTA [Suspect]
     Indication: PAIN
     Dosage: 1 capsule once daily po
     Route: 048
     Dates: start: 201106, end: 201112
  3. CABERGOLINE [Concomitant]
  4. VITAMIN D3 [Concomitant]
  5. NEXIUM [Concomitant]
  6. BENTYL [Concomitant]

REACTIONS (2)
  - Hepatotoxicity [None]
  - Mania [None]
